FAERS Safety Report 7775907-8 (Version None)
Quarter: 2011Q3

REPORT INFORMATION
  Report Type: 
  Country: None (occurrence: None)
  Receive Date: 20110923
  Receipt Date: 20110922
  Transmission Date: 20111222
  Serious: Yes (Hospitalization)
  Sender: FDA-Public Use
  Company Number: CH-ROCHE-775497

PATIENT
  Sex: Female
  Weight: 69 kg

DRUGS (2)
  1. LISINOPRIL [Concomitant]
     Dosage: TOTAL DAILY DOSE REPORTED AS: 1-0-0.5
     Dates: start: 20100616
  2. TRASTUZUMAB [Suspect]
     Indication: BREAST CANCER
     Dosage: DATE OF LAST DOSE PRIOR TO SAE: 26 APRIL 2011
     Route: 042
     Dates: start: 20100726

REACTIONS (1)
  - PERIPHERAL ARTERIAL OCCLUSIVE DISEASE [None]
